FAERS Safety Report 5053974-2 (Version None)
Quarter: 2006Q2

REPORT INFORMATION
  Report Type: 
  Country: None (occurrence: None)
  Receive Date: 20060614
  Receipt Date: 20060331
  Transmission Date: 20061013
  Serious: Yes (Other)
  Sender: FDA-Public Use
  Company Number: 442989

PATIENT
  Age: 73 Year
  Sex: Female

DRUGS (6)
  1. BONIVA [Suspect]
     Indication: OSTEOPOROSIS
     Dosage: 1 PER MONTH ORAL
     Route: 048
     Dates: start: 20060115, end: 20060115
  2. ATENOLOL [Concomitant]
  3. NFIEDIPINE (NIFEDIPINE) [Concomitant]
  4. ZETIA [Concomitant]
  5. TEMAZEPAM [Concomitant]
  6. MIACALCIN [Concomitant]

REACTIONS (2)
  - FLATULENCE [None]
  - NAUSEA [None]
